FAERS Safety Report 26006716 (Version 1)
Quarter: 2025Q4

REPORT INFORMATION
  Report Type: Spontaneous
  Country: US (occurrence: US)
  Receive Date: 20251106
  Receipt Date: 20251106
  Transmission Date: 20260117
  Serious: Yes (Hospitalization)
  Sender: MERCK SHARP & DOHME LLC
  Company Number: US-009507513-2344263

PATIENT
  Sex: Female
  Weight: 86.183 kg

DRUGS (12)
  1. PEMBROLIZUMAB [Suspect]
     Active Substance: PEMBROLIZUMAB
  2. PEMBROLIZUMAB [Suspect]
     Active Substance: PEMBROLIZUMAB
     Dates: end: 202510
  3. LENVIMA [Suspect]
     Active Substance: LENVATINIB
     Dosage: 10MG/4MG
  4. LENVIMA [Suspect]
     Active Substance: LENVATINIB
     Dosage: 10MG/4MG
     Dates: end: 202510
  5. VALSARTAN [Concomitant]
     Active Substance: VALSARTAN
     Dosage: STRENGTH: 80MG
  6. LEVOTHYROXINE SODIUM [Concomitant]
     Active Substance: LEVOTHYROXINE SODIUM
     Dosage: STRENGTH: 125MCG
  7. PYRIDOXINE [Concomitant]
     Active Substance: PYRIDOXINE
     Dosage: STRENGTH: 250MG
  8. JANUVIA [Concomitant]
     Active Substance: SITAGLIPTIN PHOSPHATE
     Dosage: STRENGTH: 100MG
  9. TORSEMIDE [Concomitant]
     Active Substance: TORSEMIDE
     Dosage: STRENGTH: 10MG
  10. VALACYCLOVIR [Concomitant]
     Active Substance: VALACYCLOVIR HYDROCHLORIDE
     Dosage: STRENGTH: 500MG
  11. EZETIMIBE\SIMVASTATIN [Concomitant]
     Active Substance: EZETIMIBE\SIMVASTATIN
  12. AMLODIPINE BESYLATE [Concomitant]
     Active Substance: AMLODIPINE BESYLATE
     Dosage: STRENGTH: 5MG

REACTIONS (5)
  - Dehydration [Not Recovered/Not Resolved]
  - Blood pressure increased [Not Recovered/Not Resolved]
  - Gastrooesophageal reflux disease [Not Recovered/Not Resolved]
  - Oral herpes [Not Recovered/Not Resolved]
  - Arthralgia [Not Recovered/Not Resolved]
